FAERS Safety Report 11174185 (Version 3)
Quarter: 2015Q2

REPORT INFORMATION
  Report Type: Report from Study
  Country: US (occurrence: US)
  Receive Date: 20150609
  Receipt Date: 20150629
  Transmission Date: 20150821
  Serious: Yes (Death, Hospitalization, Other)
  Sender: FDA-Public Use
  Company Number: US-ALEXION-A201502047

PATIENT

DRUGS (1)
  1. SOLIRIS [Suspect]
     Active Substance: ECULIZUMAB
     Indication: HAEMOLYTIC URAEMIC SYNDROME
     Route: 042

REACTIONS (11)
  - Gastroduodenal ulcer [Unknown]
  - Haemoglobin abnormal [Unknown]
  - Upper gastrointestinal haemorrhage [Unknown]
  - Blood creatinine abnormal [Unknown]
  - Death [Fatal]
  - Confusional state [Unknown]
  - Platelet count abnormal [Unknown]
  - Decreased appetite [Unknown]
  - Social avoidant behaviour [Unknown]
  - Mood altered [Unknown]
  - Unevaluable event [Unknown]

NARRATIVE: CASE EVENT DATE: 20150529
